FAERS Safety Report 7373933-4 (Version None)
Quarter: 2011Q1

REPORT INFORMATION
  Report Type: 
  Country: None (occurrence: None)
  Receive Date: 20110325
  Receipt Date: 20110321
  Transmission Date: 20110831
  Serious: Yes (Other)
  Sender: FDA-Public Use
  Company Number: US-PFIZER INC-2011063007

PATIENT
  Sex: Female
  Weight: 104.3 kg

DRUGS (13)
  1. HUMULIN R [Concomitant]
     Dosage: 35 IU, 2X/DAY
  2. KLONOPIN [Concomitant]
     Dosage: 1 MG, 3X/DAY
  3. NITROGLYCERIN [Concomitant]
     Dosage: UNK
     Route: 048
  4. LOVASTATIN [Concomitant]
     Dosage: 10 MG, 3X/DAY
     Route: 048
  5. FLEXERIL [Concomitant]
     Dosage: UNK
     Route: 048
  6. ZOLOFT [Concomitant]
     Dosage: 100 MG, 2X/DAY
     Route: 048
  7. CARDIZEM [Concomitant]
     Dosage: 16 MG, 3X/DAY
     Route: 048
  8. PREDNISONE [Concomitant]
     Dosage: 20 MG, 2X/DAY
     Route: 048
  9. NEURONTIN [Concomitant]
     Dosage: 1600 MG, 2X/DAY
     Route: 048
  10. ATIVAN [Concomitant]
     Dosage: 1 MG, 3X/DAY
     Route: 048
  11. GLIPIZIDE [Concomitant]
     Dosage: 5 MG, 2X/DAY
     Route: 048
  12. NORVASC [Suspect]
     Indication: HYPERTENSION
     Dosage: 10 MG, 2X/DAY
     Route: 048
  13. NEXIUM [Concomitant]
     Dosage: 40 MG, 1X/DAY
     Route: 048

REACTIONS (2)
  - DYSPNOEA [None]
  - RASH [None]
